FAERS Safety Report 11695189 (Version 1)
Quarter: 2015Q4

REPORT INFORMATION
  Report Type: Spontaneous
  Country: TW (occurrence: TW)
  Receive Date: 20151103
  Receipt Date: 20151103
  Transmission Date: 20160304
  Serious: Yes (Hospitalization, Other)
  Sender: FDA-Public Use
  Company Number: TW-AMGEN-TWNSP2015114964

PATIENT
  Age: 18 Year
  Sex: Female

DRUGS (1)
  1. ENBREL [Suspect]
     Active Substance: ETANERCEPT
     Indication: JUVENILE IDIOPATHIC ARTHRITIS
     Dosage: 25 MG, TWICE PER WEEK
     Route: 058
     Dates: start: 20140623

REACTIONS (13)
  - Toxic epidermal necrolysis [Unknown]
  - Rash [Unknown]
  - Erythema [Unknown]
  - Drug hypersensitivity [Unknown]
  - Oropharyngeal pain [Unknown]
  - Pruritus [Unknown]
  - Influenza virus test positive [Unknown]
  - Eyelid oedema [Unknown]
  - Skin swelling [Unknown]
  - Blister [Unknown]
  - Lip swelling [Unknown]
  - Hypotension [Unknown]
  - Platelet count decreased [Unknown]

NARRATIVE: CASE EVENT DATE: 201510
